FAERS Safety Report 7444801-4 (Version None)
Quarter: 2011Q2

REPORT INFORMATION
  Report Type: 
  Country: None (occurrence: None)
  Receive Date: 20110427
  Receipt Date: 20110427
  Transmission Date: 20111010
  Serious: No
  Sender: FDA-Public Use
  Company Number: None

PATIENT
  Age: 54 Year
  Sex: Female
  Weight: 50.9 kg

DRUGS (1)
  1. MIRTAZAPINE [Suspect]
     Indication: DEPRESSION
     Dosage: 15 HS PO
     Route: 048
     Dates: start: 20110216, end: 20110315

REACTIONS (5)
  - MYALGIA [None]
  - MUSCLE SPASTICITY [None]
  - PAIN [None]
  - SPINAL CORD DISORDER [None]
  - ARTHRALGIA [None]
